FAERS Safety Report 7567909-1 (Version None)
Quarter: 2011Q2

REPORT INFORMATION
  Report Type: 
  Country: None (occurrence: None)
  Receive Date: 20110623
  Receipt Date: 20110614
  Transmission Date: 20111010
  Serious: Yes (Hospitalization)
  Sender: FDA-Public Use
  Company Number: JP-ASTRAZENECA-2011SE30900

PATIENT
  Age: 78 Year
  Sex: Male
  Weight: 60 kg

DRUGS (23)
  1. KAITRON [Concomitant]
     Indication: CARDIAC FAILURE
     Route: 048
  2. LASIX [Concomitant]
     Indication: HYPERTENSION
     Route: 048
  3. PRAVASTATIN SODIUM [Concomitant]
     Indication: HYPERLIPIDAEMIA
     Route: 048
  4. HUSTAZOL [Concomitant]
     Indication: ASTHMA
     Route: 048
  5. UNIPHYL LA [Concomitant]
     Indication: ASTHMA
     Route: 048
  6. SODIUM POLYSTYRENE SULFONATE [Concomitant]
     Indication: HYPERKALAEMIA
     Route: 048
     Dates: start: 20101009, end: 20101013
  7. SALOBEL [Concomitant]
     Indication: HYPERURICAEMIA
     Route: 048
     Dates: start: 20101026
  8. AMLODIPINE [Concomitant]
     Indication: HYPERTENSION
     Route: 048
  9. SIGMART [Concomitant]
     Indication: ANGINA PECTORIS
     Route: 048
  10. MUCOSOLVAN L [Concomitant]
     Indication: ASTHMA
     Route: 048
  11. SINGULAIR [Concomitant]
     Indication: ASTHMA
     Route: 048
  12. ALDACTONE [Concomitant]
     Indication: HYPERTENSION
     Route: 048
  13. BISOLVON [Concomitant]
     Indication: ASTHMA
     Route: 055
  14. ALBUMIN (HUMAN) [Concomitant]
     Indication: OEDEMA
     Route: 042
     Dates: start: 20101102, end: 20101104
  15. LASIX [Concomitant]
     Route: 042
     Dates: start: 20101008, end: 20101012
  16. MEPTIN [Concomitant]
     Indication: ASTHMA
     Route: 055
  17. ADALAT [Concomitant]
     Indication: HYPERTENSION
     Route: 048
  18. LASIX [Concomitant]
     Route: 042
     Dates: start: 20101019, end: 20101021
  19. OZAGREL [Concomitant]
     Indication: ASTHMA
     Route: 048
     Dates: start: 20101015
  20. SYMBICORT [Suspect]
     Indication: ASTHMA
     Route: 055
     Dates: start: 20101007, end: 20101008
  21. SYMBICORT [Suspect]
     Route: 055
     Dates: start: 20101020, end: 20101108
  22. PERSANTIN [Concomitant]
     Indication: ANGINA PECTORIS
     Route: 048
  23. LASIX [Concomitant]
     Route: 042
     Dates: start: 20101027, end: 20101111

REACTIONS (3)
  - BRONCHOPNEUMONIA [None]
  - PNEUMONIA [None]
  - STOMATITIS [None]
